FAERS Safety Report 10184214 (Version 4)
Quarter: 2014Q2

REPORT INFORMATION
  Report Type: Spontaneous
  Country: US (occurrence: US)
  Receive Date: 20140520
  Receipt Date: 20140624
  Transmission Date: 20141212
  Serious: No
  Sender: FDA-Public Use
  Company Number: US-009507513-1405USA006794

PATIENT
  Sex: Female
  Weight: 55.78 kg

DRUGS (3)
  1. OXYTROL FOR WOMEN [Suspect]
     Indication: BLADDER DISORDER
     Dosage: UNK, Q5D
     Route: 062
     Dates: start: 201401
  2. OXYTROL FOR WOMEN [Suspect]
     Indication: URINARY INCONTINENCE
     Dosage: UNK, Q5D
     Route: 062
     Dates: start: 201401
  3. OXYTROL FOR WOMEN [Suspect]
     Dosage: UNK, Q5D
     Route: 062
     Dates: start: 20140515, end: 20140531

REACTIONS (3)
  - Drug ineffective [Unknown]
  - Product packaging issue [Unknown]
  - Product adhesion issue [Unknown]
